FAERS Safety Report 15802593 (Version 1)
Quarter: 2018Q4

REPORT INFORMATION
  Report Type: Spontaneous
  Country: US (occurrence: US)
  Receive Date: 20181213
  Receipt Date: 20181213
  Transmission Date: 20190205
  Serious: No
  Sender: FDA-Public Use
  Company Number: None

PATIENT
  Age: 43 Year
  Sex: Male
  Weight: 87.63 kg

DRUGS (1)
  1. CIPROFLOXACIN. [Suspect]
     Active Substance: CIPROFLOXACIN
     Indication: EYE INFECTION
     Route: 047
     Dates: start: 20180902, end: 20180906

REACTIONS (5)
  - Angioedema [None]
  - Rash [None]
  - Urticaria [None]
  - Face oedema [None]
  - Pruritus [None]

NARRATIVE: CASE EVENT DATE: 20180907
